FAERS Safety Report 7933387-3 (Version None)
Quarter: 2011Q4

REPORT INFORMATION
  Report Type: 
  Country: None (occurrence: None)
  Receive Date: 20111122
  Receipt Date: 20111122
  Transmission Date: 20120403
  Serious: Yes (Other)
  Sender: FDA-Public Use
  Company Number: None

PATIENT
  Age: 36 Year
  Sex: Female
  Weight: 74.842 kg

DRUGS (1)
  1. TOPAMAX [Suspect]
     Indication: COMPLEX PARTIAL SEIZURES
     Dosage: 100MG
     Route: 048
     Dates: start: 20080709, end: 20111121

REACTIONS (2)
  - HYPOAESTHESIA [None]
  - PARAESTHESIA [None]
